FAERS Safety Report 6939472-7 (Version None)
Quarter: 2010Q3

REPORT INFORMATION
  Report Type: 
  Country: None (occurrence: None)
  Receive Date: 20100819
  Receipt Date: 20100722
  Transmission Date: 20110219
  Serious: Yes (Other)
  Sender: FDA-Public Use
  Company Number: PD-135

PATIENT
  Age: 63 Year
  Sex: Female

DRUGS (1)
  1. LEVETIRACETAM [Suspect]
     Indication: MYOCLONUS
     Dosage: 500 MG/ 2XDAY/ INTRAVENOUS; LOADED IN 20 MINUTES
     Route: 042

REACTIONS (1)
  - VOMITING [None]
